FAERS Safety Report 19052155 (Version 1)
Quarter: 2021Q1

REPORT INFORMATION
  Report Type: Other
  Country: GB (occurrence: GB)
  Receive Date: 20210324
  Receipt Date: 20210324
  Transmission Date: 20210420
  Serious: No
  Sender: FDA-Public Use
  Company Number: GB-LUPIN PHARMACEUTICALS INC.-2021-03603

PATIENT
  Age: 26 Year
  Sex: Female
  Weight: 75.29 kg

DRUGS (1)
  1. SERTRALINE [Suspect]
     Active Substance: SERTRALINE HYDROCHLORIDE
     Indication: DEPRESSION SUICIDAL
     Dosage: 50 MILLIGRAM, UNK
     Route: 048
     Dates: start: 20201208

REACTIONS (1)
  - Snoring [Not Recovered/Not Resolved]

NARRATIVE: CASE EVENT DATE: 20210104
